FAERS Safety Report 10395308 (Version 2)
Quarter: 2014Q2

REPORT INFORMATION
  Report Type: Spontaneous
  Country: US (occurrence: None)
  Receive Date: 20130328
  Receipt Date: 20140604
  Transmission Date: 20141212
  Serious: Yes (Hospitalization)
  Sender: FDA-Public Use
  Company Number: 20120503CINRY2941

PATIENT
  Age: 55 Year
  Sex: Female

DRUGS (5)
  1. CINRYZE [Suspect]
     Indication: HEREDITARY ANGIOEDEMA
     Dosage: 1500 UNIT, 1 IN 3 D
     Route: 042
     Dates: start: 201105, end: 201107
  2. CINRYZE [Suspect]
     Dosage: 1500 UNIT, 1 IN 3 D
     Route: 042
     Dates: start: 201105, end: 201107
  3. ADVAIR DISKUS [Concomitant]
  4. FIRAZYR (ICATIBANT ACETATE) [Concomitant]
  5. HIGH BLOOD PRESSURE MEDICATIONS (ANTIHYPERTENSIVES) [Concomitant]

REACTIONS (7)
  - Hereditary angioedema [None]
  - Gallbladder disorder [None]
  - Therapy change [None]
  - Therapy change [None]
  - Medical device complication [None]
  - Medical device complication [None]
  - Off label use [None]
